FAERS Safety Report 7952881-2 (Version None)
Quarter: 2011Q4

REPORT INFORMATION
  Report Type: 
  Country: None (occurrence: None)
  Receive Date: 20111201
  Receipt Date: 20111124
  Transmission Date: 20120403
  Serious: Yes (Hospitalization)
  Sender: FDA-Public Use
  Company Number: DE-ASTRAZENECA-2011SE71621

PATIENT
  Age: 13 Year
  Sex: Female
  Weight: 44 kg

DRUGS (2)
  1. NASONEX [Concomitant]
     Indication: RHINITIS ALLERGIC
     Dosage: 1 HUB
     Route: 045
     Dates: start: 20110314, end: 20110525
  2. PULMICORT [Suspect]
     Indication: ASTHMA
     Route: 055
     Dates: start: 20051201

REACTIONS (2)
  - OESOPHAGEAL CANDIDIASIS [None]
  - COUGH [None]
